FAERS Safety Report 5271578-3 (Version None)
Quarter: 2007Q1

REPORT INFORMATION
  Report Type: 
  Country: None (occurrence: None)
  Receive Date: 20070321
  Receipt Date: 20070310
  Transmission Date: 20070707
  Serious: Yes (Other)
  Sender: FDA-Public Use
  Company Number: US-PFIZER INC-2007019228

PATIENT
  Sex: Female
  Weight: 83 kg

DRUGS (6)
  1. CHANTIX [Suspect]
     Indication: EX-SMOKER
  2. SIL-NORBORAL [Concomitant]
  3. CENTRUM [Concomitant]
  4. CALTRATE [Concomitant]
  5. GLUCOSAMINE [Concomitant]
  6. MUCINEX [Concomitant]

REACTIONS (6)
  - BLOOD GLUCOSE INCREASED [None]
  - CHOLANGITIS [None]
  - HEART RATE INCREASED [None]
  - HYPERHIDROSIS [None]
  - INFECTION [None]
  - TREMOR [None]
